FAERS Safety Report 23693027 (Version 1)
Quarter: 2024Q1

REPORT INFORMATION
  Report Type: Spontaneous
  Country: US (occurrence: None)
  Receive Date: 20240330
  Receipt Date: 20240330
  Transmission Date: 20240410
  Serious: Yes (Hospitalization)
  Sender: FDA-Public Use
  Company Number: None

PATIENT
  Age: 14 Year
  Sex: Male

DRUGS (7)
  1. DUPIXENT [Suspect]
     Active Substance: DUPILUMAB
     Indication: Asthma
     Dates: start: 20220305
  2. ALBUTEROL HFA INH [Concomitant]
  3. BUDESONIDE/FORM [Concomitant]
  4. CALCIUM 500 W/VIT D3 [Concomitant]
  5. FLUTICASONE [Concomitant]
  6. SPIRIVA RESPIMAT [Concomitant]
  7. TRIAMCINOLONE 0.1% [Concomitant]

REACTIONS (2)
  - Dyspnoea [None]
  - Fall [None]

NARRATIVE: CASE EVENT DATE: 20240317
